FAERS Safety Report 6463479-X (Version None)
Quarter: 2009Q4

REPORT INFORMATION
  Report Type: 
  Country: None (occurrence: None)
  Receive Date: 20091201
  Receipt Date: 20091118
  Transmission Date: 20100525
  Serious: Yes (Hospitalization)
  Sender: FDA-Public Use
  Company Number: US-BIOGENIDEC-2008BI012171

PATIENT
  Age: 40 Year
  Sex: Male
  Weight: 106 kg

DRUGS (1)
  1. TYSABRI [Suspect]
     Indication: MULTIPLE SCLEROSIS
     Route: 042
     Dates: start: 20070711

REACTIONS (20)
  - DEEP VEIN THROMBOSIS [None]
  - DYSURIA [None]
  - FALL [None]
  - FATIGUE [None]
  - FOOT DEFORMITY [None]
  - GAIT DISTURBANCE [None]
  - HEAD INJURY [None]
  - HIP FRACTURE [None]
  - INFUSION RELATED REACTION [None]
  - MALAISE [None]
  - MEMORY IMPAIRMENT [None]
  - MUSCULAR WEAKNESS [None]
  - POOR VENOUS ACCESS [None]
  - POST PROCEDURAL HAEMORRHAGE [None]
  - PYREXIA [None]
  - SKIN INFECTION [None]
  - SPEECH DISORDER [None]
  - TENDON DISORDER [None]
  - TREMOR [None]
  - URINARY TRACT INFECTION PSEUDOMONAL [None]
